FAERS Safety Report 19351689 (Version 1)
Quarter: 2021Q2

REPORT INFORMATION
  Report Type: Spontaneous
  Country: JP (occurrence: JP)
  Receive Date: 20210531
  Receipt Date: 20210531
  Transmission Date: 20210717
  Serious: Yes (Hospitalization, Other)
  Sender: FDA-Public Use
  Company Number: JP-MICRO LABS LIMITED-ML2021-01626

PATIENT
  Age: 54 Year
  Sex: Female
  Weight: 77.5 kg

DRUGS (6)
  1. OLMESARTAN MEDOXOMIL. [Suspect]
     Active Substance: OLMESARTAN MEDOXOMIL
     Indication: SUICIDE ATTEMPT
     Dosage: DAILY
  2. AMLODIPINE [Suspect]
     Active Substance: AMLODIPINE BESYLATE
     Indication: SUICIDE ATTEMPT
     Dosage: DAILY
  3. AMLODIPINE [Suspect]
     Active Substance: AMLODIPINE BESYLATE
     Indication: HYPERTENSION
     Dosage: APPROXIMATELY 10 H BEFORE ARRIVAL
  4. BROTIZOLAM [Concomitant]
     Active Substance: BROTIZOLAM
     Indication: SUICIDE ATTEMPT
     Dosage: APPROXIMATELY 10 H BEFORE ARRIVAL
  5. OLMESARTAN MEDOXOMIL. [Suspect]
     Active Substance: OLMESARTAN MEDOXOMIL
     Indication: HYPERTENSION
     Dosage: APPROXIMATELY 10 H BEFORE ARRIVAL
  6. ETIZOLAM [Concomitant]
     Active Substance: ETIZOLAM
     Indication: SUICIDE ATTEMPT
     Dosage: APPROXIMATELY 10 H BEFORE ARRIVAL

REACTIONS (7)
  - Suicide attempt [Unknown]
  - Hypotension [Unknown]
  - Overdose [Unknown]
  - Vasoplegia syndrome [Unknown]
  - Distributive shock [Unknown]
  - Toxicity to various agents [Unknown]
  - Mental status changes [Unknown]
